FAERS Safety Report 26007732 (Version 2)
Quarter: 2025Q4

REPORT INFORMATION
  Report Type: Report from Study
  Country: US (occurrence: US)
  Receive Date: 20251106
  Receipt Date: 20251219
  Transmission Date: 20260117
  Serious: Yes (Hospitalization, Other)
  Sender: NOVARTIS
  Company Number: US-002147023-NVSC2025US022757

PATIENT
  Age: 43 Year
  Sex: Female
  Weight: 125 kg

DRUGS (4)
  1. ILARIS [Suspect]
     Active Substance: CANAKINUMAB
     Indication: Still^s disease
     Dosage: 150 MG, Q2W
     Route: 058
  2. ILARIS [Suspect]
     Active Substance: CANAKINUMAB
     Dosage: 150 MG, Q2W (ONCE EVERY TWO WEEKS)
     Route: 058
     Dates: start: 20200813
  3. ILARIS [Suspect]
     Active Substance: CANAKINUMAB
     Dosage: 150 MG, Q2W (ONCE EVERY TWO WEEKS)
     Route: 058
     Dates: start: 2020, end: 20201009
  4. ILARIS [Suspect]
     Active Substance: CANAKINUMAB
     Dosage: 150 MG, Q2W (ONCE EVERY TWO WEEKS)
     Route: 058

REACTIONS (4)
  - Pneumonia [Recovering/Resolving]
  - Still^s disease [Recovering/Resolving]
  - Ligament sprain [Recovering/Resolving]
  - Serum ferritin increased [Unknown]

NARRATIVE: CASE EVENT DATE: 20250202
